FAERS Safety Report 23364651 (Version 1)
Quarter: 2024Q1

REPORT INFORMATION
  Report Type: Report from Study
  Country: US (occurrence: US)
  Receive Date: 20240104
  Receipt Date: 20240104
  Transmission Date: 20240410
  Serious: Yes (Hospitalization)
  Sender: FDA-Public Use
  Company Number: US-ABBVIE-5566821

PATIENT
  Sex: Female

DRUGS (3)
  1. IMBRUVICA [Suspect]
     Active Substance: IBRUTINIB
     Indication: Chronic lymphocytic leukaemia
     Dosage: STRENGTH- 420 MG
     Route: 048
     Dates: start: 20180710, end: 20211011
  2. IMBRUVICA [Suspect]
     Active Substance: IBRUTINIB
     Indication: Chronic lymphocytic leukaemia
     Dosage: STRENGTH-280 MG
     Route: 048
     Dates: end: 20230823
  3. IMBRUVICA [Suspect]
     Active Substance: IBRUTINIB
     Indication: Chronic lymphocytic leukaemia
     Dosage: STRENGTH-140MG
     Route: 048

REACTIONS (6)
  - COVID-19 [Unknown]
  - Heart rate increased [Unknown]
  - Anxiety [Unknown]
  - Dehydration [Unknown]
  - Muscle spasms [Unknown]
  - Pneumonia [Unknown]
